FAERS Safety Report 10391047 (Version 4)
Quarter: 2014Q4

REPORT INFORMATION
  Report Type: Report from Study
  Country: CA (occurrence: CA)
  Receive Date: 20140818
  Receipt Date: 20141111
  Transmission Date: 20150528
  Serious: Yes (Hospitalization)
  Sender: FDA-Public Use
  Company Number: CA-BAYER-2014-087928

PATIENT
  Age: 67 Year
  Sex: Male

DRUGS (5)
  1. GLYBURIDE. [Concomitant]
     Active Substance: GLYBURIDE
  2. ASA [Concomitant]
     Active Substance: ASPIRIN
     Dosage: 81 MG, UNK
  3. STIVARGA [Suspect]
     Active Substance: REGORAFENIB
     Indication: COLORECTAL CANCER METASTATIC
     Dosage: 120 MG, OD
     Route: 048
     Dates: start: 20140603, end: 201410
  4. MINOCYCLINE [Concomitant]
     Active Substance: MINOCYCLINE\MINOCYCLINE HYDROCHLORIDE
  5. AVAPRO [Concomitant]
     Active Substance: IRBESARTAN
     Dosage: 12.5 MG, UNK

REACTIONS (6)
  - Gout [Recovered/Resolved]
  - Myalgia [Recovered/Resolved]
  - Dry skin [None]
  - Muscle spasms [None]
  - Fatigue [Recovering/Resolving]
  - Blood pressure increased [None]

NARRATIVE: CASE EVENT DATE: 2014
